FAERS Safety Report 4712666-7 (Version None)
Quarter: 2005Q3

REPORT INFORMATION
  Report Type: 
  Country: None (occurrence: None)
  Receive Date: 20050706
  Receipt Date: 20041021
  Transmission Date: 20060218
  Serious: Yes (Death)
  Sender: FDA-Public Use
  Company Number: US-2004-032616

PATIENT
  Age: 78 Year
  Sex: Male
  Weight: 62.1 kg

DRUGS (11)
  1. CAMPATH [Suspect]
     Indication: CHRONIC LYMPHOCYTIC LEUKAEMIA
     Dosage: SEE IMAGE
     Route: 042
     Dates: start: 20040610, end: 20040616
  2. CAMPATH [Suspect]
     Indication: CHRONIC LYMPHOCYTIC LEUKAEMIA
     Dosage: SEE IMAGE
     Route: 042
     Dates: start: 20040618, end: 20040623
  3. CAMPATH [Suspect]
     Indication: CHRONIC LYMPHOCYTIC LEUKAEMIA
     Dosage: SEE IMAGE
     Route: 042
     Dates: start: 20040625, end: 20040729
  4. . [Concomitant]
  5. . [Concomitant]
  6. BENADRYL ^WARNER-LAMBERT^ /USA/(DIPHENHYDRMAINE HYDROCHLORIDE) [Concomitant]
  7. TYLENOL [Concomitant]
  8. DEMEROL [Concomitant]
  9. PHENERGAN ^AVENTIS PHARMA^ (PROMETHAZINE HYDROCHLORIDE) [Concomitant]
  10. LEVAQUIN [Concomitant]
  11. VALTREX [Concomitant]

REACTIONS (1)
  - TUBERCULOSIS [None]
